FAERS Safety Report 4709118-7 (Version None)
Quarter: 2005Q3

REPORT INFORMATION
  Report Type: 
  Country: None (occurrence: None)
  Receive Date: 20050708
  Receipt Date: 20050617
  Transmission Date: 20060218
  Serious: Yes (Hospitalization)
  Sender: FDA-Public Use
  Company Number: JP-ABBOTT-05P-087-0303561-00

PATIENT
  Sex: Female
  Weight: 9.5 kg

DRUGS (7)
  1. CEFZON SUSPENSION [Suspect]
     Indication: OTITIS MEDIA ACUTE
     Route: 048
     Dates: start: 20050515, end: 20050530
  2. DEXCHLORPHENIRAMINE MALEATE [Suspect]
     Indication: DRUG USE FOR UNKNOWN INDICATION
     Route: 048
     Dates: start: 20050515, end: 20050530
  3. CYPROHEPTADINE HYDROCHLORIDE [Concomitant]
     Indication: DRUG USE FOR UNKNOWN INDICATION
  4. CARBOCISTEINE [Concomitant]
     Indication: DRUG USE FOR UNKNOWN INDICATION
  5. DEXTROMETHORPHAN HYDROBROMIDE [Concomitant]
     Indication: DRUG USE FOR UNKNOWN INDICATION
     Route: 048
     Dates: start: 20050515, end: 20050530
  6. TULOBUTEROL HYDROCHLORIDE [Concomitant]
     Indication: DRUG USE FOR UNKNOWN INDICATION
     Dosage: TAPE
     Dates: end: 20050530
  7. CEFDITOREN PIVOXIL [Concomitant]
     Indication: DRUG USE FOR UNKNOWN INDICATION
     Dates: start: 20050531, end: 20050603

REACTIONS (4)
  - GRANULOCYTOPENIA [None]
  - MASTOIDITIS [None]
  - MENINGITIS [None]
  - SINUSITIS [None]
